FAERS Safety Report 8820824 (Version 1)
Quarter: 2012Q4

REPORT INFORMATION
  Report Type: 
  Country: ZA (occurrence: ZA)
  Receive Date: 20121002
  Receipt Date: 20121002
  Transmission Date: 20130627
  Serious: Yes (Hospitalization)
  Sender: FDA-Public Use
  Company Number: ZA-ELI_LILLY_AND_COMPANY-ZA201209008276

PATIENT
  Sex: Male

DRUGS (8)
  1. HUMALOG 25% LISPRO, 75% NPL [Suspect]
     Indication: DIABETES MELLITUS
     Dosage: 25 u, each morning
     Route: 058
     Dates: start: 201111
  2. HUMALOG 25% LISPRO, 75% NPL [Suspect]
     Dosage: 11 u, each evening
     Route: 058
     Dates: start: 201111
  3. GLUCOPHAGE [Concomitant]
     Indication: DIABETES MELLITUS
     Dosage: 2 DF, each evening
     Route: 048
  4. GLICLAZIDE [Concomitant]
     Indication: DIABETES MELLITUS
     Dosage: 160 mg, bid
     Route: 048
  5. PHARMAPRESS [Concomitant]
     Indication: BLOOD PRESSURE ABNORMAL
     Dosage: 1 DF, each morning
     Route: 048
  6. ADCO-SIMVASTATIN [Concomitant]
     Indication: BLOOD CHOLESTEROL ABNORMAL
     Dosage: 40 mg, qd
     Route: 048
  7. DIURETICS [Concomitant]
     Indication: DIURETIC THERAPY
     Dosage: 80 mg, bid
     Route: 048
  8. SLOW-K [Concomitant]
     Indication: VITAMIN SUPPLEMENTATION
     Dosage: 1 DF, bid
     Route: 048

REACTIONS (1)
  - Pneumonia [Unknown]
